FAERS Safety Report 6177890-8 (Version None)
Quarter: 2009Q2

REPORT INFORMATION
  Report Type: 
  Country: None (occurrence: None)
  Receive Date: 20090504
  Receipt Date: 20090428
  Transmission Date: 20091009
  Serious: Yes (Hospitalization, Other)
  Sender: FDA-Public Use
  Company Number: US-TEVA-193360USA

PATIENT
  Sex: Female

DRUGS (4)
  1. CLOZAPINE [Suspect]
     Indication: SCHIZOPHRENIA
     Route: 048
     Dates: start: 20081001, end: 20090401
  2. VALPROATE SODIUM [Suspect]
     Route: 048
  3. LITHIUM CARBONATE [Suspect]
     Route: 048
  4. QUETIAPINE [Suspect]
     Dosage: HS
     Route: 048

REACTIONS (7)
  - AMMONIA INCREASED [None]
  - ENCEPHALOPATHY [None]
  - FACIAL PALSY [None]
  - MENTAL STATUS CHANGES [None]
  - NAUSEA [None]
  - SYNCOPE [None]
  - VOMITING [None]
